FAERS Safety Report 16449455 (Version 1)
Quarter: 2019Q2

REPORT INFORMATION
  Report Type: Spontaneous
  Country: DE (occurrence: DE)
  Receive Date: 20190619
  Receipt Date: 20190619
  Transmission Date: 20190711
  Serious: Yes (Other)
  Sender: FDA-Public Use
  Company Number: DE-AUROBINDO-AUR-APL-2019-034315

PATIENT

DRUGS (6)
  1. SIMVASTATIN FILM-COATED TABLETS 40MG [Interacting]
     Active Substance: SIMVASTATIN
     Indication: PERIPHERAL ARTERIAL OCCLUSIVE DISEASE
  2. SIMVASTATIN FILM-COATED TABLETS 40MG [Suspect]
     Active Substance: SIMVASTATIN
     Indication: DYSLIPIDAEMIA
     Dosage: 40MG
     Route: 048
     Dates: start: 2009
  3. COLCHYSAT [Interacting]
     Active Substance: COLCHICUM AUTUMNALE FLOWER\HERBALS
     Indication: GOUT
     Dosage: 25 GTT DROPS, TWO TIMES A DAY,FIRST DAY 2X25, THEN 1X25 DROPS
     Route: 048
     Dates: start: 20190424, end: 20190424
  4. SIMVASTATIN FILM-COATED TABLETS 40MG [Interacting]
     Active Substance: SIMVASTATIN
     Indication: CORONARY ARTERY DISEASE
  5. ALLOPURINOL. [Concomitant]
     Active Substance: ALLOPURINOL
     Indication: PRODUCT USED FOR UNKNOWN INDICATION
     Dosage: UNK
     Route: 065
     Dates: start: 2008
  6. COLCHYSAT [Interacting]
     Active Substance: COLCHICUM AUTUMNALE FLOWER\HERBALS
     Dosage: 25 GTT DROPS, DAILY
     Route: 048
     Dates: start: 20190425, end: 20190505

REACTIONS (2)
  - Renal failure [Recovered/Resolved]
  - Rhabdomyolysis [Recovered/Resolved]

NARRATIVE: CASE EVENT DATE: 20190505
